FAERS Safety Report 13567344 (Version 2)
Quarter: 2018Q1

REPORT INFORMATION
  Report Type: Spontaneous
  Country: US (occurrence: US)
  Receive Date: 20170522
  Receipt Date: 20180213
  Transmission Date: 20180508
  Serious: No
  Sender: FDA-Public Use
  Company Number: US-MYLANLABS-2017M1020563

PATIENT
  Sex: Male

DRUGS (3)
  1. AMITRIPTYLINE HYDROCHLORIDE TABLETS, USP [Suspect]
     Active Substance: AMITRIPTYLINE HYDROCHLORIDE
     Dosage: 10 MG, QD, AT NOON
     Route: 048
     Dates: start: 201610
  2. AMITRIPTYLINE HYDROCHLORIDE TABLETS, USP [Suspect]
     Active Substance: AMITRIPTYLINE HYDROCHLORIDE
     Dosage: 30 MG, HS
     Route: 048
     Dates: start: 201610
  3. AMITRIPTYLINE HYDROCHLORIDE TABLETS, USP [Suspect]
     Active Substance: AMITRIPTYLINE HYDROCHLORIDE
     Indication: MIGRAINE
     Dosage: 20 MG, QD, EVERY MORNING
     Route: 048
     Dates: start: 201610

REACTIONS (2)
  - Drug screen negative [Unknown]
  - Drug ineffective for unapproved indication [Recovering/Resolving]
